FAERS Safety Report 7701741-0 (Version None)
Quarter: 2011Q3

REPORT INFORMATION
  Report Type: 
  Country: None (occurrence: None)
  Receive Date: 20110822
  Receipt Date: 20110812
  Transmission Date: 20111222
  Serious: Yes (Hospitalization)
  Sender: FDA-Public Use
  Company Number: DE-CELGENEUS-062-21880-11081000

PATIENT
  Age: 71 Year
  Sex: Male
  Weight: 50.8 kg

DRUGS (5)
  1. DEXAMETHASONE [Suspect]
     Indication: PLASMACYTOMA
     Route: 065
     Dates: start: 20110810
  2. TAVGIN [Concomitant]
     Indication: PAIN
     Dosage: 10 MILLIGRAM
     Route: 065
     Dates: start: 20100828
  3. REVLIMID [Suspect]
     Indication: PLASMACYTOMA
     Dosage: 15MG - 5 MG
     Route: 048
     Dates: start: 20110810
  4. VITAMIN B-12 [Concomitant]
     Indication: VITAMIN B12 DEFICIENCY
     Dosage: 1 VIAL
     Route: 065
     Dates: start: 20100614
  5. IBANDRONATE SODIUM [Concomitant]
     Indication: PLASMACYTOMA
     Dosage: 6 MILLIGRAM
     Route: 065
     Dates: start: 20070615

REACTIONS (1)
  - HEPATIC NEOPLASM MALIGNANT [None]
